FAERS Safety Report 4559055-6 (Version None)
Quarter: 2005Q1

REPORT INFORMATION
  Report Type: 
  Country: None (occurrence: None)
  Receive Date: 20050124
  Receipt Date: 20050112
  Transmission Date: 20050727
  Serious: Yes (Hospitalization)
  Sender: FDA-Public Use
  Company Number: JP-JNJFOC-20041206948

PATIENT
  Sex: Female
  Weight: 60 kg

DRUGS (35)
  1. REMICADE [Suspect]
     Route: 042
  2. REMICADE [Suspect]
     Route: 042
  3. REMICADE [Suspect]
     Route: 042
  4. REMICADE [Suspect]
     Route: 042
  5. REMICADE [Suspect]
     Indication: RHEUMATOID ARTHRITIS
     Route: 042
  6. PREDONINE [Suspect]
     Route: 049
  7. PREDONINE [Suspect]
     Indication: RHEUMATOID ARTHRITIS
     Route: 049
  8. METHOTREXATE [Suspect]
     Route: 049
  9. METHOTREXATE [Suspect]
     Route: 049
  10. METHOTREXATE [Suspect]
     Indication: RHEUMATOID ARTHRITIS
     Route: 049
  11. BRUFEN [Concomitant]
     Indication: RHEUMATOID ARTHRITIS
     Route: 049
  12. LOXONIN [Concomitant]
     Indication: RHEUMATOID ARTHRITIS
     Route: 049
  13. KETOPROFEN [Concomitant]
  14. FOLIAMIN [Concomitant]
     Route: 049
  15. POLARAMINE [Concomitant]
     Route: 049
  16. SELBEX [Concomitant]
     Route: 049
  17. PURSENNID [Concomitant]
     Route: 049
  18. ZANTAC [Concomitant]
     Route: 049
  19. KLARICID [Concomitant]
     Route: 049
  20. KAMAG [Concomitant]
     Route: 049
  21. PRIMPERAN INJ [Concomitant]
     Route: 042
  22. GASTER [Concomitant]
     Route: 042
  23. SOLDEM 3A [Concomitant]
     Route: 042
  24. SOLDEM 3A [Concomitant]
     Route: 042
  25. SOLDEM 3A [Concomitant]
     Route: 042
  26. SOLDEM 3A [Concomitant]
     Route: 042
  27. PN-TWIN-1 [Concomitant]
     Route: 042
  28. PN-TWIN-1 [Concomitant]
     Route: 042
  29. PN-TWIN-1 [Concomitant]
     Route: 042
  30. VOLVIX [Concomitant]
     Route: 042
  31. GLYCERIN ENEMA [Concomitant]
     Route: 054
  32. PN TWIN-2 [Concomitant]
     Route: 042
  33. PN TWIN-2 [Concomitant]
     Route: 042
  34. PN TWIN-2 [Concomitant]
     Route: 042
  35. DAIMEDIN-MULTI [Concomitant]

REACTIONS (1)
  - ENTERITIS INFECTIOUS [None]
